FAERS Safety Report 13168600 (Version 2)
Quarter: 2017Q1

REPORT INFORMATION
  Report Type: Spontaneous
  Country: JP (occurrence: JP)
  Receive Date: 20170131
  Receipt Date: 20170213
  Transmission Date: 20170428
  Serious: Yes (Life-Threatening, Hospitalization)
  Sender: FDA-Public Use
  Company Number: JP-BAUSCH-BL-2017-002390

PATIENT
  Age: 82 Year
  Sex: Female

DRUGS (2)
  1. MOVIPREP [Suspect]
     Active Substance: ASCORBIC ACID\POLYETHYLENE GLYCOL 3350\POTASSIUM CHLORIDE\SODIUM ASCORBATE\SODIUM CHLORIDE\SODIUM SULFATE
     Indication: ENDOSCOPY LARGE BOWEL
     Dosage: 1 LITRE AND 500 ML OF WATER
     Route: 048
     Dates: start: 20170117, end: 20170117
  2. LAXOBERON [Concomitant]
     Active Substance: SODIUM PICOSULFATE
     Indication: PRODUCT USED FOR UNKNOWN INDICATION
     Dates: start: 20170116, end: 20170116

REACTIONS (8)
  - Speech disorder [Unknown]
  - Foaming at mouth [Unknown]
  - Confusional state [Unknown]
  - Dysarthria [Unknown]
  - Cardio-respiratory arrest [Recovered/Resolved]
  - Muscle spasms [Unknown]
  - Blood sodium decreased [Unknown]
  - Seizure [Recovered/Resolved]

NARRATIVE: CASE EVENT DATE: 20170117
